FAERS Safety Report 12987850 (Version 2)
Quarter: 2016Q4

REPORT INFORMATION
  Report Type: Spontaneous
  Country: US (occurrence: US)
  Receive Date: 20161130
  Receipt Date: 20161216
  Transmission Date: 20170207
  Serious: No
  Sender: FDA-Public Use
  Company Number: US-WARNER CHILCOTT, LLC-1060257

PATIENT
  Age: 61 Year
  Sex: Female

DRUGS (3)
  1. DITROPAN [Suspect]
     Active Substance: OXYBUTYNIN CHLORIDE
  2. ENABLEX [Suspect]
     Active Substance: DARIFENACIN HYDROBROMIDE
     Indication: INCONTINENCE
     Route: 048
  3. VESICARE [Suspect]
     Active Substance: SOLIFENACIN SUCCINATE
     Route: 048
     Dates: end: 2015

REACTIONS (4)
  - Urosepsis [Recovered/Resolved]
  - Calculus bladder [Recovered/Resolved]
  - Drug ineffective [Unknown]
  - Urinary tract infection [Recovered/Resolved]

NARRATIVE: CASE EVENT DATE: 201601
